FAERS Safety Report 7336397-2 (Version None)
Quarter: 2011Q1

REPORT INFORMATION
  Report Type: 
  Country: None (occurrence: None)
  Receive Date: 20110307
  Receipt Date: 20110209
  Transmission Date: 20110831
  Serious: No
  Sender: FDA-Public Use
  Company Number: US-B.I. PHARMACEUTICALS,INC./RIDGEFIELD-2010-BP-01276BP

PATIENT
  Sex: Female
  Weight: 61.23 kg

DRUGS (2)
  1. MIRAPEX [Suspect]
     Indication: RESTLESS LEGS SYNDROME
  2. MIRAPEX [Suspect]
     Indication: FIBROMYALGIA
     Dates: end: 20090901

REACTIONS (10)
  - COMPULSIVE SHOPPING [None]
  - DEPRESSION [None]
  - STRESS [None]
  - PATHOLOGICAL GAMBLING [None]
  - EMOTIONAL DISTRESS [None]
  - PANIC ATTACK [None]
  - OBSESSIVE-COMPULSIVE DISORDER [None]
  - PAIN [None]
  - ACCIDENTAL OVERDOSE [None]
  - ANXIETY [None]
